FAERS Safety Report 14554275 (Version 1)
Quarter: 2018Q1

REPORT INFORMATION
  Report Type: Spontaneous
  Country: US (occurrence: US)
  Receive Date: 20180217
  Receipt Date: 20180217
  Transmission Date: 20180509
  Serious: No
  Sender: FDA-Public Use
  Company Number: None

PATIENT
  Age: 25 Year
  Sex: Female
  Weight: 43.09 kg

DRUGS (2)
  1. SKYLA [Suspect]
     Active Substance: LEVONORGESTREL
  2. ONE A DAY WOMEN^S MULTIVITAMIN [Concomitant]

REACTIONS (15)
  - Vaginal discharge [None]
  - Acne [None]
  - Chest pain [None]
  - Genital pain [None]
  - Breast tenderness [None]
  - Post procedural haemorrhage [None]
  - Muscle spasms [None]
  - Dyspareunia [None]
  - Abdominal distension [None]
  - Disturbance in attention [None]
  - Nausea [None]
  - Decreased appetite [None]
  - Mood swings [None]
  - Insomnia [None]
  - Gastrooesophageal reflux disease [None]

NARRATIVE: CASE EVENT DATE: 20180216
